FAERS Safety Report 8314983-0 (Version None)
Quarter: 2012Q2

REPORT INFORMATION
  Report Type: 
  Country: None (occurrence: None)
  Receive Date: 20120426
  Receipt Date: 20120120
  Transmission Date: 20120825
  Serious: No
  Sender: FDA-Public Use
  Company Number: US-MUTUAL PHARMACEUTICAL COMPANY, INC.-CLCY20120014

PATIENT
  Sex: Female

DRUGS (3)
  1. COLCRYS [Suspect]
     Route: 048
     Dates: start: 20120101, end: 20120101
  2. COLCRYS [Suspect]
     Indication: GOUT
     Route: 048
     Dates: start: 20111201, end: 20111201
  3. UNSPECIFIED MEDICATION [Concomitant]
     Indication: HYPERTENSION
     Route: 065

REACTIONS (1)
  - BLOOD PRESSURE INCREASED [None]
